FAERS Safety Report 7446792-9 (Version None)
Quarter: 2011Q2

REPORT INFORMATION
  Report Type: 
  Country: None (occurrence: None)
  Receive Date: 20110429
  Receipt Date: 20101020
  Transmission Date: 20111010
  Serious: No
  Sender: FDA-Public Use
  Company Number: US-ASTRAZENECA-2010SE49955

PATIENT
  Age: 638 Month
  Sex: Male

DRUGS (1)
  1. NEXIUM [Suspect]
     Route: 048

REACTIONS (8)
  - ABDOMINAL DISTENSION [None]
  - FALL [None]
  - INFECTION [None]
  - LIVER DISORDER [None]
  - ARTERIAL OCCLUSIVE DISEASE [None]
  - VOMITING [None]
  - APHASIA [None]
  - HEPATITIS C [None]
